FAERS Safety Report 13129869 (Version 1)
Quarter: 2017Q1

REPORT INFORMATION
  Report Type: Report from Study
  Country: CR (occurrence: CR)
  Receive Date: 20170119
  Receipt Date: 20170119
  Transmission Date: 20170428
  Serious: Yes (Other)
  Sender: FDA-Public Use
  Company Number: PHHY2017CR006762

PATIENT
  Age: 62 Year
  Sex: Female

DRUGS (1)
  1. EXFORGE [Suspect]
     Active Substance: AMLODIPINE BESYLATE\VALSARTAN
     Indication: PRODUCT USED FOR UNKNOWN INDICATION
     Dosage: (AMLODIPINE 5MG, VALSARTAN 320 MG)
     Route: 065

REACTIONS (8)
  - Renal disorder [Unknown]
  - Drug dependence [Unknown]
  - Headache [Unknown]
  - Liver disorder [Unknown]
  - Psychotic disorder [Unknown]
  - Stress [Unknown]
  - Gastrointestinal disorder [Unknown]
  - Dizziness [Unknown]
